FAERS Safety Report 20519214 (Version 2)
Quarter: 2022Q1

REPORT INFORMATION
  Report Type: Spontaneous
  Country: CN (occurrence: CN)
  Receive Date: 20220225
  Receipt Date: 20220303
  Transmission Date: 20220423
  Serious: Yes (Life-Threatening, Hospitalization, Other)
  Sender: FDA-Public Use
  Company Number: CN-TAKEDA-2022TUS012599

PATIENT

DRUGS (1)
  1. NINLARO [Suspect]
     Active Substance: IXAZOMIB CITRATE
     Indication: Plasma cell myeloma
     Dosage: UNK UNK, 1/WEEK
     Route: 048
     Dates: start: 20220113

REACTIONS (18)
  - Multiple organ dysfunction syndrome [Unknown]
  - Depressed level of consciousness [Unknown]
  - Oxygen saturation abnormal [Unknown]
  - Hepatic function abnormal [Unknown]
  - Renal failure [Recovered/Resolved]
  - Cardiac failure [Unknown]
  - Pneumonia [Recovering/Resolving]
  - Neuropathy peripheral [Unknown]
  - Seizure [Unknown]
  - Cerebral haemorrhage [Unknown]
  - Posterior reversible encephalopathy syndrome [Unknown]
  - Accidental overdose [Unknown]
  - Hypoaesthesia [Unknown]
  - Mental disorder [Unknown]
  - Mobility decreased [Unknown]
  - Pyrexia [Unknown]
  - Vomiting [Unknown]
  - Diarrhoea [Unknown]

NARRATIVE: CASE EVENT DATE: 20220121
